FAERS Safety Report 8167734-7 (Version None)
Quarter: 2012Q1

REPORT INFORMATION
  Report Type: 
  Country: None (occurrence: None)
  Receive Date: 20120227
  Receipt Date: 20120217
  Transmission Date: 20120608
  Serious: Yes (Hospitalization, Other)
  Sender: FDA-Public Use
  Company Number: KR-ROCHE-1026634

PATIENT
  Sex: Male
  Weight: 46 kg

DRUGS (19)
  1. FLUOROURACIL [Suspect]
     Indication: COLORECTAL CANCER METASTATIC
     Route: 042
     Dates: start: 20111129
  2. FLUOROURACIL [Suspect]
     Route: 042
     Dates: start: 20120109
  3. IRCODON [Concomitant]
     Dates: start: 20111206
  4. MAGNESIUM OXIDE [Concomitant]
     Dates: start: 20120109
  5. STILLEN [Concomitant]
     Dates: start: 20120105, end: 20120208
  6. OXALIPLATIN [Suspect]
     Indication: COLORECTAL CANCER METASTATIC
     Route: 042
     Dates: start: 20111129
  7. LEUCOVORIN CALCIUM [Suspect]
     Route: 042
     Dates: start: 20120109
  8. ZOLPIDEM [Concomitant]
     Dates: start: 20120109
  9. AVASTIN [Suspect]
     Indication: COLORECTAL CANCER METASTATIC
     Route: 042
     Dates: start: 20111122
  10. AVASTIN [Suspect]
     Route: 042
     Dates: start: 20120109
  11. FEROBA-YOU SR [Concomitant]
     Dates: start: 20111215
  12. TAGAMET [Concomitant]
     Dates: start: 20120109
  13. MAGNESIUM OXIDE [Concomitant]
     Dates: start: 20111221, end: 20120209
  14. LEUCOVORIN CALCIUM [Suspect]
     Indication: COLORECTAL CANCER METASTATIC
     Route: 042
     Dates: start: 20111129
  15. GANATON [Concomitant]
     Dates: start: 20120109
  16. OXALIPLATIN [Suspect]
     Route: 042
     Dates: start: 20120109
  17. FLUOROURACIL [Suspect]
  18. OXYCONTIN [Concomitant]
     Dates: start: 20111215
  19. NORZYME [Concomitant]
     Dates: start: 20110109

REACTIONS (3)
  - INFECTION [None]
  - ANAL INFECTION [None]
  - RECTAL OBSTRUCTION [None]
